FAERS Safety Report 4773014-X (Version None)
Quarter: 2005Q3

REPORT INFORMATION
  Report Type: 
  Country: None (occurrence: None)
  Receive Date: 20050916
  Receipt Date: 20050905
  Transmission Date: 20060218
  Serious: Yes (Hospitalization)
  Sender: FDA-Public Use
  Company Number: 2005-131919-NL

PATIENT
  Age: 31 Year
  Sex: Female

DRUGS (3)
  1. MIRTAZAPINE [Suspect]
     Indication: DEPRESSION
     Dosage: 45 MG ORAL
     Route: 048
     Dates: start: 20050601, end: 20050727
  2. VENLAFAXINE HCL [Suspect]
     Indication: DRUG RESISTANCE
     Dosage: 150 MG
     Dates: start: 20050712, end: 20050727
  3. ZOPICLONE [Concomitant]

REACTIONS (4)
  - EPILEPSY [None]
  - FALL [None]
  - INSOMNIA [None]
  - VERTEBRAL INJURY [None]
